FAERS Safety Report 23549019 (Version 1)
Quarter: 2024Q1

REPORT INFORMATION
  Report Type: Spontaneous
  Country: US (occurrence: US)
  Receive Date: 20240221
  Receipt Date: 20240221
  Transmission Date: 20240410
  Serious: No
  Sender: FDA-Public Use
  Company Number: US-BAYER-2024A026284

PATIENT
  Sex: Female

DRUGS (1)
  1. MIRENA [Suspect]
     Active Substance: LEVONORGESTREL
     Dosage: 20?G/DAY
     Route: 015
     Dates: start: 20190122, end: 20240125

REACTIONS (7)
  - Device dislocation [Recovered/Resolved]
  - Complication of device removal [None]
  - Post procedural haemorrhage [None]
  - Procedural pain [None]
  - Procedural anxiety [None]
  - Acne [None]
  - Back pain [None]

NARRATIVE: CASE EVENT DATE: 20240101
